FAERS Safety Report 25553834 (Version 1)
Quarter: 2025Q3

REPORT INFORMATION
  Report Type: Spontaneous
  Country: CH (occurrence: CH)
  Receive Date: 20250715
  Receipt Date: 20250715
  Transmission Date: 20251021
  Serious: Yes (Other)
  Sender: BAYER HEALTHCARE PHARMACEUTICALS INC.
  Company Number: CH-BAYER-2025A089220

PATIENT
  Age: 85 Year
  Sex: Male

DRUGS (2)
  1. NUBEQA [Suspect]
     Active Substance: DAROLUTAMIDE
     Indication: Hormone-dependent prostate cancer
     Dates: start: 202503, end: 202507
  2. TERBINAFINE [Suspect]
     Active Substance: TERBINAFINE
     Dates: end: 202506

REACTIONS (21)
  - Aspartate aminotransferase increased [None]
  - Alanine aminotransferase increased [None]
  - Gamma-glutamyltransferase increased [None]
  - Chromaturia [None]
  - Hypochromasia [None]
  - Red cell distribution width increased [None]
  - Blood creatinine increased [None]
  - Blood urea increased [None]
  - Haemoglobin decreased [None]
  - Haematocrit decreased [None]
  - Red blood cell count decreased [None]
  - Red blood cell count increased [None]
  - Mean cell haemoglobin concentration decreased [None]
  - Red cell distribution width increased [None]
  - High density lipoprotein increased [None]
  - Blood bilirubin increased [None]
  - Blood creatinine increased [None]
  - Glomerular filtration rate decreased [None]
  - C-reactive protein increased [None]
  - Fatigue [None]
  - Off label use [None]

NARRATIVE: CASE EVENT DATE: 20250101
